FAERS Safety Report 7776593-3 (Version None)
Quarter: 2011Q3

REPORT INFORMATION
  Report Type: 
  Country: None (occurrence: None)
  Receive Date: 20110922
  Receipt Date: 20110914
  Transmission Date: 20111222
  Serious: Yes (Other)
  Sender: FDA-Public Use
  Company Number: 201109035

PATIENT
  Age: 59 Year
  Sex: Male
  Weight: 72.5755 kg

DRUGS (5)
  1. TESTIM [Suspect]
     Indication: BLOOD TESTOSTERONE DECREASED
     Dosage: 1 IN 1 D, TRANSDERMAL
     Route: 062
  2. ALLOPURINOL [Concomitant]
  3. TRAMADOL HCL [Concomitant]
  4. DICLOFENAC SODIUM [Concomitant]
  5. TRAZODONE HCL [Concomitant]

REACTIONS (2)
  - CHORIORETINOPATHY [None]
  - SCOTOMA [None]
